FAERS Safety Report 19224038 (Version 1)
Quarter: 2021Q2

REPORT INFORMATION
  Report Type: Spontaneous
  Country: US (occurrence: US)
  Receive Date: 20210505
  Receipt Date: 20210505
  Transmission Date: 20210717
  Serious: No
  Sender: FDA-Public Use
  Company Number: US-ROCHE-2569286

PATIENT
  Sex: Male

DRUGS (1)
  1. ESBRIET [Suspect]
     Active Substance: PIRFENIDONE
     Indication: IDIOPATHIC PULMONARY FIBROSIS
     Dosage: 267 MG WEEK 1:1 TABLET 3 TIMES A DAY; WEEK 2: 2 TABLETS 3 TIMES A DAY; WEEK 3: 3 TABLETS 3 TIMES A W
     Route: 048
     Dates: start: 20200303

REACTIONS (1)
  - Cough [Unknown]
